FAERS Safety Report 15931491 (Version 1)
Quarter: 2019Q1

REPORT INFORMATION
  Report Type: Spontaneous
  Country: GB (occurrence: GB)
  Receive Date: 20190207
  Receipt Date: 20190207
  Transmission Date: 20190417
  Serious: Yes (Other)
  Sender: FDA-Public Use
  Company Number: GB-TEVA-2019-GB-1007697

PATIENT
  Age: 56 Year
  Sex: Female
  Weight: 60 kg

DRUGS (2)
  1. NITROFURANTOIN. [Concomitant]
     Active Substance: NITROFURANTOIN
  2. NAPROXEN. [Suspect]
     Active Substance: NAPROXEN
     Indication: BURSITIS
     Dosage: 1000 MILLIGRAM DAILY; ONLY TAKEN ONCE.
     Route: 048
     Dates: start: 20190105, end: 20190112

REACTIONS (1)
  - Blood urine present [Recovering/Resolving]

NARRATIVE: CASE EVENT DATE: 20190111
